FAERS Safety Report 14558576 (Version 2)
Quarter: 2018Q1

REPORT INFORMATION
  Report Type: Report from Study
  Country: UA (occurrence: UA)
  Receive Date: 20180221
  Receipt Date: 20180302
  Transmission Date: 20180509
  Serious: Yes (Hospitalization, Other)
  Sender: FDA-Public Use
  Company Number: UA-AMGEN-UKRCT2018021449

PATIENT
  Age: 45 Year
  Sex: Male

DRUGS (8)
  1. DARBEPOETIN ALFA [Suspect]
     Active Substance: DARBEPOETIN ALFA
     Indication: ANAEMIA
     Dosage: 60 MUG, Q2WK
     Route: 058
     Dates: start: 20170907, end: 20171113
  2. LISINOPRIL. [Concomitant]
     Active Substance: LISINOPRIL
     Dosage: UNK
     Dates: start: 20161010
  3. TONORMA [Concomitant]
     Dosage: UNK
     Dates: start: 20161010
  4. CARDIOMAGNYL [Concomitant]
     Active Substance: ASPIRIN\MAGNESIUM HYDROXIDE
     Dosage: UNK
     Dates: start: 20170828
  5. ROSUVASTATIN. [Concomitant]
     Active Substance: ROSUVASTATIN
     Dosage: UNK
     Dates: start: 20170828
  6. DARBEPOETIN ALFA [Suspect]
     Active Substance: DARBEPOETIN ALFA
     Dosage: 45 MUG, Q2WK
     Route: 058
     Dates: start: 20171114
  7. FARMASULIN H [Concomitant]
     Dosage: UNK
     Dates: start: 20100101
  8. INDAPAMID [Concomitant]
     Active Substance: INDAPAMIDE
     Dosage: UNK
     Dates: start: 20170828

REACTIONS (1)
  - Pyelonephritis chronic [Recovered/Resolved]

NARRATIVE: CASE EVENT DATE: 20180207
